FAERS Safety Report 6281533-2 (Version None)
Quarter: 2009Q3

REPORT INFORMATION
  Report Type: 
  Country: None (occurrence: None)
  Receive Date: 20090724
  Receipt Date: 20090519
  Transmission Date: 20100115
  Serious: No
  Sender: FDA-Public Use
  Company Number: A0785056A

PATIENT
  Sex: Male

DRUGS (11)
  1. AVANDIA [Suspect]
     Dosage: 8MG PER DAY
     Route: 048
     Dates: start: 20090406
  2. RAMIPRIL [Concomitant]
  3. ALLOPURINOL [Concomitant]
  4. METFORMIN HCL [Concomitant]
  5. BYETTA [Concomitant]
  6. GLUCOTROL XL [Concomitant]
  7. AVODART [Concomitant]
  8. FLOMAX [Concomitant]
  9. CYMBALTA [Concomitant]
  10. LIPITOR [Concomitant]
  11. PREVACID [Concomitant]

REACTIONS (3)
  - CHEST DISCOMFORT [None]
  - DYSPNOEA [None]
  - OEDEMA PERIPHERAL [None]
